FAERS Safety Report 4287818-3 (Version None)
Quarter: 2004Q1

REPORT INFORMATION
  Report Type: 
  Country: None (occurrence: None)
  Receive Date: 20040205
  Receipt Date: 20040120
  Transmission Date: 20041129
  Serious: Yes (Hospitalization)
  Sender: FDA-Public Use
  Company Number: 2004-111646-NL

PATIENT
  Age: 34 Year
  Sex: Male

DRUGS (2)
  1. DEXAMETHASONE [Suspect]
     Dosage: 5 MG; INTRAVENOUS (NOS)
     Route: 042
  2. DIPHENHYDRAMINE HCL [Concomitant]

REACTIONS (1)
  - HICCUPS [None]
